FAERS Safety Report 19693948 (Version 2)
Quarter: 2021Q4

REPORT INFORMATION
  Report Type: Spontaneous
  Country: BE (occurrence: BE)
  Receive Date: 20210812
  Receipt Date: 20211117
  Transmission Date: 20220303
  Serious: Yes (Hospitalization, Other)
  Sender: FDA-Public Use
  Company Number: BE-CELGENE-BEL-20210202632

PATIENT
  Age: 83 Year
  Sex: Male

DRUGS (18)
  1. AZACITIDINE [Suspect]
     Active Substance: AZACITIDINE
     Indication: Myelodysplastic syndrome
     Dosage: 75 MILLIGRAM/SQ. METER, QW
     Route: 058
     Dates: start: 20201221, end: 20210126
  2. VENETOCLAX [Suspect]
     Active Substance: VENETOCLAX
     Indication: Myelodysplastic syndrome
     Dosage: 2800 MILLIGRAM, Q28D (200 MILLIGRAM)
     Route: 048
     Dates: start: 20201221, end: 20210131
  3. VENETOCLAX [Suspect]
     Active Substance: VENETOCLAX
     Indication: Acute myeloid leukaemia
  4. ALLOPURINOL [Concomitant]
     Active Substance: ALLOPURINOL
     Indication: Prophylaxis
     Dosage: 300 MILLIGRAM, QD
     Route: 048
     Dates: start: 20201221
  5. FLUCONAZOLE [Concomitant]
     Active Substance: FLUCONAZOLE
     Indication: Infection prophylaxis
     Dosage: 200 MILLIGRAM, QD
     Route: 048
     Dates: start: 20200911
  6. ESCITALOPRAM [Concomitant]
     Active Substance: ESCITALOPRAM OXALATE
     Indication: Depression
     Dosage: 20 MILLIGRAM, QD
     Route: 048
     Dates: start: 20171206
  7. TRAMADOL [Concomitant]
     Active Substance: TRAMADOL
     Indication: Intervertebral disc disorder
     Dosage: 50 MILLIGRAM
     Route: 048
     Dates: start: 20210122
  8. MOXIFLOXACIN [Concomitant]
     Active Substance: MOXIFLOXACIN
     Indication: C-reactive protein increased
     Dosage: 400 MILLIGRAM, QD
     Route: 048
     Dates: start: 20210121
  9. ACYCLOVIR [Concomitant]
     Active Substance: ACYCLOVIR
     Indication: Infection prophylaxis
     Dosage: 3600 MILLIGRAM, QD (1200 MILLIGRAM)
     Route: 065
     Dates: start: 20200911
  10. TRAZODONE [Concomitant]
     Active Substance: TRAZODONE HYDROCHLORIDE
     Indication: Depression
     Dosage: 50 MILLIGRAM, QD
     Route: 048
     Dates: start: 2002, end: 20210203
  11. ACETAMINOPHEN [Concomitant]
     Active Substance: ACETAMINOPHEN
     Indication: Headache
     Dosage: 1 GRAM
     Route: 048
     Dates: start: 20210121, end: 20210201
  12. ACETAMINOPHEN [Concomitant]
     Active Substance: ACETAMINOPHEN
     Dosage: 16 GRAM, QD (4 GRAM)
     Route: 048
     Dates: start: 20210202
  13. RIVAROXABAN [Concomitant]
     Active Substance: RIVAROXABAN
     Indication: Anti factor VIII antibody increased
     Dosage: UNK
  14. RIVAROXABAN [Concomitant]
     Active Substance: RIVAROXABAN
     Indication: Thrombosis prophylaxis
     Dosage: 10 MILLIGRAM, QD
     Route: 048
     Dates: start: 20021005
  15. OXYBUTYNINE                        /00538901/ [Concomitant]
     Indication: Bladder disorder
     Dosage: 5 MILLIGRAM, QD
     Route: 048
     Dates: start: 20151014
  16. TRAMADOL [Concomitant]
     Active Substance: TRAMADOL
     Indication: Intervertebral disc disorder
     Dosage: 400 MILLIGRAM, QD (400 MILLIGRAM )
     Route: 048
     Dates: start: 20210125
  17. ALIZAPRIDE [Concomitant]
     Active Substance: ALIZAPRIDE
     Indication: Prophylaxis of nausea and vomiting
     Dosage: 450 MILLIEQUIVALENT, QD (150 MILLIEQUIVALENTS)
     Route: 048
     Dates: start: 20201221
  18. OMEPRAZOLE [Concomitant]
     Active Substance: OMEPRAZOLE
     Indication: Supplementation therapy
     Dosage: 1, UNK, QD
     Route: 065
     Dates: start: 20121209

REACTIONS (1)
  - General physical health deterioration [Not Recovered/Not Resolved]

NARRATIVE: CASE EVENT DATE: 20210201
